FAERS Safety Report 25894088 (Version 1)
Quarter: 2025Q4

REPORT INFORMATION
  Report Type: Other
  Country: GB (occurrence: GB)
  Receive Date: 20251008
  Receipt Date: 20251008
  Transmission Date: 20260117
  Serious: Yes (Other)
  Sender: GLENMARK
  Company Number: None

PATIENT
  Sex: Female

DRUGS (2)
  1. MONTELUKAST SODIUM [Suspect]
     Active Substance: MONTELUKAST SODIUM
     Indication: Product used for unknown indication
     Dosage: UNK
     Route: 065
     Dates: start: 2023
  2. AMBROXOL\LEVOCETIRIZINE\MONTELUKAST [Suspect]
     Active Substance: AMBROXOL\LEVOCETIRIZINE\MONTELUKAST
     Indication: Asthma
     Dosage: UNK
     Route: 065
     Dates: end: 20250911

REACTIONS (4)
  - Heart rate increased [Unknown]
  - Palpitations [Unknown]
  - Anxiety [Unknown]
  - Nightmare [Unknown]

NARRATIVE: CASE EVENT DATE: 20231001
